FAERS Safety Report 17900518 (Version 6)
Quarter: 2021Q1

REPORT INFORMATION
  Report Type: Report from Study
  Country: CL (occurrence: CL)
  Receive Date: 20200616
  Receipt Date: 20210119
  Transmission Date: 20210419
  Serious: Yes (Death, Life-Threatening, Hospitalization, Other)
  Sender: FDA-Public Use
  Company Number: PHHY2018CL162064

PATIENT
  Age: 64 Year
  Sex: Female

DRUGS (10)
  1. COSENTYX [Suspect]
     Active Substance: SECUKINUMAB
     Indication: PSORIATIC ARTHROPATHY
     Dosage: 300 MG, QMO
     Route: 058
     Dates: start: 201810
  2. COSENTYX [Suspect]
     Active Substance: SECUKINUMAB
     Dosage: UNK
     Route: 058
     Dates: start: 20190215
  3. COSENTYX [Suspect]
     Active Substance: SECUKINUMAB
     Dosage: UNK
     Route: 058
  4. COSENTYX [Suspect]
     Active Substance: SECUKINUMAB
     Dosage: 150 MG, UNK
     Route: 058
     Dates: start: 201901
  5. COSENTYX [Suspect]
     Active Substance: SECUKINUMAB
     Dosage: 300 MG, UNK
     Route: 058
     Dates: start: 201902
  6. COSENTYX [Suspect]
     Active Substance: SECUKINUMAB
     Indication: PSORIASIS
     Dosage: 300 MG, QW
     Route: 058
     Dates: start: 20181025
  7. COSENTYX [Suspect]
     Active Substance: SECUKINUMAB
     Dosage: UNK
     Route: 058
  8. INFLUENZA VACCINE [Concomitant]
     Active Substance: INFLUENZA VIRUS VACCINE
     Indication: PROPHYLAXIS
     Dosage: UNK
     Route: 065
  9. COSENTYX [Suspect]
     Active Substance: SECUKINUMAB
     Dosage: 300 MG, QW
     Route: 058
     Dates: start: 20181116
  10. COSENTYX [Suspect]
     Active Substance: SECUKINUMAB
     Dosage: 300 MG, UNKNOWN
     Route: 058
     Dates: start: 20190722

REACTIONS (20)
  - Pain in extremity [Unknown]
  - Influenza [Unknown]
  - Decreased immune responsiveness [Unknown]
  - Drug ineffective [Not Recovered/Not Resolved]
  - Psoriasis [Unknown]
  - Asthenia [Unknown]
  - Hepatic cancer [Not Recovered/Not Resolved]
  - Cardiac failure [Recovered/Resolved]
  - Hepatic failure [Recovering/Resolving]
  - Dysgeusia [Recovered/Resolved]
  - Pruritus [Recovered/Resolved]
  - Skin irritation [Recovering/Resolving]
  - Dyspepsia [Recovered/Resolved]
  - Nasopharyngitis [Unknown]
  - Multiple organ dysfunction syndrome [Fatal]
  - Fatigue [Recovered/Resolved]
  - Illness [Recovering/Resolving]
  - Arthralgia [Unknown]
  - Pulmonary oedema [Recovered/Resolved]
  - Burning sensation [Recovering/Resolving]

NARRATIVE: CASE EVENT DATE: 201810
